FAERS Safety Report 9153098 (Version 1)
Quarter: 2013Q1

REPORT INFORMATION
  Report Type: Spontaneous
  Country: US (occurrence: US)
  Receive Date: 20130311
  Receipt Date: 20130311
  Transmission Date: 20140127
  Serious: No
  Sender: FDA-Public Use
  Company Number: US-009507513-1303USA002183

PATIENT
  Age: 66 Year
  Sex: Female

DRUGS (9)
  1. JANUVIA [Suspect]
     Indication: GLYCOSYLATED HAEMOGLOBIN INCREASED
     Dosage: 100 MG, QD
     Route: 048
     Dates: start: 20130223, end: 20130228
  2. METFORMIN [Concomitant]
  3. LISINOPRIL [Concomitant]
  4. ASPIRIN [Concomitant]
  5. ASCORBIC ACID [Concomitant]
  6. CALCIUM (UNSPECIFIED) [Concomitant]
  7. MAGNESIUM (UNSPECIFIED) [Concomitant]
  8. MOTRIN IB [Concomitant]
  9. SIMVASTATIN [Concomitant]

REACTIONS (6)
  - Tremor [Recovered/Resolved]
  - Hypoglycaemia [Recovered/Resolved]
  - Abdominal discomfort [Recovered/Resolved]
  - Stomatitis [Recovered/Resolved]
  - Fatigue [Recovered/Resolved]
  - Feeling abnormal [Recovered/Resolved]
